FAERS Safety Report 16552533 (Version 1)
Quarter: 2019Q3

REPORT INFORMATION
  Report Type: Report from Study
  Country: MX (occurrence: MX)
  Receive Date: 20190710
  Receipt Date: 20190710
  Transmission Date: 20191004
  Serious: Yes (Other)
  Sender: FDA-Public Use
  Company Number: PHHY2019MX148210

PATIENT
  Sex: Female
  Weight: 70 kg

DRUGS (3)
  1. GALVUS MET [Suspect]
     Active Substance: METFORMIN HYDROCHLORIDE\VILDAGLIPTIN
     Indication: DIABETES MELLITUS
     Dosage: UNK
     Route: 048
  2. TEBOVEN [Concomitant]
     Indication: CARDIOVASCULAR DISORDER
     Dosage: 2 DF, QD (10 YEARS AGO)
     Route: 048
  3. GALVUS MET [Suspect]
     Active Substance: METFORMIN HYDROCHLORIDE\VILDAGLIPTIN
     Dosage: 1 DF, QD (METFORMIN 500 MG, VILDAGLIPTIN 50MG)
     Route: 048
     Dates: start: 201906

REACTIONS (5)
  - Cardiac discomfort [Unknown]
  - Pulmonary fibrosis [Unknown]
  - Cataract [Unknown]
  - Renal pain [Unknown]
  - Urinary incontinence [Unknown]
